FAERS Safety Report 8060129-6 (Version None)
Quarter: 2012Q1

REPORT INFORMATION
  Report Type: 
  Country: None (occurrence: None)
  Receive Date: 20120112
  Receipt Date: 20120104
  Transmission Date: 20120608
  Serious: Yes (Hospitalization, Disabling, Other)
  Sender: FDA-Public Use
  Company Number: 2012SP000795

PATIENT
  Sex: Female

DRUGS (2)
  1. PEGASYS [Suspect]
     Indication: HEPATITIS C
     Dates: start: 20040101
  2. RIBAVIRIN [Suspect]
     Indication: HEPATITIS C
     Dates: start: 20040101

REACTIONS (6)
  - PELVIC ABSCESS [None]
  - PYREXIA [None]
  - CRYING [None]
  - DEPRESSION [None]
  - NAUSEA [None]
  - MALAISE [None]
